FAERS Safety Report 12951064 (Version 3)
Quarter: 2016Q4

REPORT INFORMATION
  Report Type: Spontaneous
  Country: AR (occurrence: AR)
  Receive Date: 20161117
  Receipt Date: 20161221
  Transmission Date: 20170207
  Serious: Yes (Hospitalization, Other)
  Sender: FDA-Public Use
  Company Number: AR-PFIZER INC-2016523094

PATIENT
  Age: 62 Year
  Sex: Male

DRUGS (2)
  1. SUTENT [Suspect]
     Active Substance: SUNITINIB MALATE
     Indication: METASTATIC RENAL CELL CARCINOMA
     Dosage: 50 MG (NO OFF PERIOD)
     Dates: start: 20160811
  2. SUTENT [Suspect]
     Active Substance: SUNITINIB MALATE
     Dosage: 50 MG, CYCLIC (4/2 SCHEME)

REACTIONS (7)
  - Neoplasm progression [Not Recovered/Not Resolved]
  - Lung disorder [Not Recovered/Not Resolved]
  - Oxygen saturation decreased [Not Recovered/Not Resolved]
  - Brain stem ischaemia [Not Recovered/Not Resolved]
  - Swelling [Not Recovered/Not Resolved]
  - Fluid retention [Not Recovered/Not Resolved]
  - Pleural disorder [Not Recovered/Not Resolved]

NARRATIVE: CASE EVENT DATE: 20161107
